FAERS Safety Report 4877366-1 (Version None)
Quarter: 2006Q1

REPORT INFORMATION
  Report Type: 
  Country: None (occurrence: None)
  Receive Date: 20060109
  Receipt Date: 20060109
  Transmission Date: 20060701
  Serious: Yes (Hospitalization, Other)
  Sender: FDA-Public Use
  Company Number: None

PATIENT
  Age: 16 Year
  Sex: Male
  Weight: 64.3 kg

DRUGS (2)
  1. IVIG -SUCROSE-FREE- [Suspect]
     Indication: APLASTIC ANAEMIA
     Dosage: 65 GRAMS  X 2 DOSES  IV
     Route: 042
     Dates: start: 20051229, end: 20051230
  2. GENGRAF [Suspect]
     Indication: LIVER TRANSPLANT
     Dosage: 150 MG   BID   PO
     Route: 048

REACTIONS (2)
  - RENAL FAILURE ACUTE [None]
  - RENAL TUBULAR NECROSIS [None]
